FAERS Safety Report 17766948 (Version 4)
Quarter: 2020Q2

REPORT INFORMATION
  Report Type: Spontaneous
  Country: GB (occurrence: GB)
  Receive Date: 20200511
  Receipt Date: 20200602
  Transmission Date: 20200714
  Serious: Yes (Hospitalization, Other)
  Sender: FDA-Public Use
  Company Number: GB-MYLANLABS-2020M1045446

PATIENT
  Age: 52 Year
  Sex: Female

DRUGS (1)
  1. CLOZARIL [Suspect]
     Active Substance: CLOZAPINE
     Indication: SCHIZOPHRENIA
     Dosage: UNK
     Route: 048
     Dates: start: 20110125

REACTIONS (7)
  - Neutrophil count increased [Unknown]
  - SARS-CoV-2 test positive [Unknown]
  - Neutrophil count decreased [Recovered/Resolved]
  - Pneumonia [Unknown]
  - Leukocytosis [Not Recovered/Not Resolved]
  - Neoplasm progression [Unknown]
  - White blood cell count decreased [Recovered/Resolved]

NARRATIVE: CASE EVENT DATE: 20200504
